FAERS Safety Report 12235637 (Version 2)
Quarter: 2016Q3

REPORT INFORMATION
  Report Type: Spontaneous
  Country: DK (occurrence: DK)
  Receive Date: 20160404
  Receipt Date: 20160714
  Transmission Date: 20161109
  Serious: Yes (Death)
  Sender: FDA-Public Use
  Company Number: DK-PFIZER INC-2016187493

PATIENT
  Age: 48 Year
  Sex: Female

DRUGS (2)
  1. PREDNISOLON /00016201/ [Suspect]
     Active Substance: PREDNISOLONE
     Indication: SUPPLEMENTATION THERAPY
     Dosage: 5 MG, DAILY
     Route: 048
     Dates: start: 20130417, end: 20150512
  2. SOLU-MEDROL [Suspect]
     Active Substance: METHYLPREDNISOLONE SODIUM SUCCINATE
     Indication: SUPPLEMENTATION THERAPY
     Dosage: 40 + 80 MG DAILY
     Route: 042
     Dates: start: 20150520, end: 20150520

REACTIONS (2)
  - Product use issue [Unknown]
  - Death [Fatal]

NARRATIVE: CASE EVENT DATE: 20150605
